FAERS Safety Report 18387292 (Version 1)
Quarter: 2020Q4

REPORT INFORMATION
  Report Type: Spontaneous
  Country: US (occurrence: US)
  Receive Date: 20201014
  Receipt Date: 20201014
  Transmission Date: 20210114
  Serious: No
  Sender: FDA-Public Use
  Company Number: None

PATIENT
  Age: 70 Year
  Sex: Male

DRUGS (2)
  1. COSENTYX [Suspect]
     Active Substance: SECUKINUMAB
     Indication: DRUG THERAPY
     Dosage: ( 1 PEN)  AT DAY 28 (DOSE 5), THEN EVERY 4  WEEKS AS DIRECTED.
     Route: 058
     Dates: start: 202009
  2. COSENTYX [Suspect]
     Active Substance: SECUKINUMAB
     Indication: PSORIATIC ARTHROPATHY
     Dosage: ( 1 PEN)  AT DAY 28 (DOSE 5), THEN EVERY 4  WEEKS AS DIRECTED.
     Route: 058
     Dates: start: 202009

REACTIONS (2)
  - Illness [None]
  - Therapy interrupted [None]
